FAERS Safety Report 13933006 (Version 2)
Quarter: 2017Q3

REPORT INFORMATION
  Report Type: Spontaneous
  Country: FR (occurrence: FR)
  Receive Date: 20170904
  Receipt Date: 20170906
  Transmission Date: 20171127
  Serious: Yes (Hospitalization, Other)
  Sender: FDA-Public Use
  Company Number: FR-ABBVIE-17K-056-2087300-00

PATIENT
  Age: 58 Year
  Sex: Male

DRUGS (2)
  1. HUMIRA [Suspect]
     Active Substance: ADALIMUMAB
     Route: 058
     Dates: start: 20170111, end: 20170808
  2. HUMIRA [Suspect]
     Active Substance: ADALIMUMAB
     Indication: CROHN^S DISEASE
     Route: 058
     Dates: start: 20160914, end: 20170111

REACTIONS (13)
  - Back pain [Unknown]
  - General physical health deterioration [Unknown]
  - Hypotension [Unknown]
  - Lung disorder [Unknown]
  - Bile duct obstruction [Unknown]
  - Dyspnoea [Unknown]
  - Dyspepsia [Unknown]
  - Breast neoplasm [Unknown]
  - Pyrexia [Unknown]
  - Legionella infection [Recovered/Resolved with Sequelae]
  - Hepatocellular injury [Unknown]
  - Hypoxia [Unknown]
  - Lipase increased [Unknown]

NARRATIVE: CASE EVENT DATE: 20170614
